FAERS Safety Report 9083751 (Version 1)
Quarter: 2013Q1

REPORT INFORMATION
  Report Type: Report from Study
  Country: US (occurrence: US)
  Receive Date: 20130129
  Receipt Date: 20130129
  Transmission Date: 20140127
  Serious: No
  Sender: FDA-Public Use
  Company Number: US-ABBOTT-12P-163-0946334-00

PATIENT
  Age: 51 Year
  Sex: Female

DRUGS (6)
  1. HUMIRA 40 MG/0.8 ML PEN [Suspect]
     Indication: CROHN^S DISEASE
     Dosage: INTERRUPTED
     Dates: start: 201106, end: 201110
  2. IMURAN [Suspect]
     Indication: PRODUCT USED FOR UNKNOWN INDICATION
  3. REQUIP [Concomitant]
     Indication: RESTLESS LEGS SYNDROME
     Dosage: AT BEDTIME
  4. TRAZODONE [Concomitant]
     Indication: INSOMNIA
     Dosage: AT NIGHT
  5. CLONAZEPAM [Concomitant]
     Indication: ANXIETY
     Dosage: EVERY 6 HOURS AS NEEDED
  6. IMODIUM [Concomitant]
     Indication: DIARRHOEA
     Dosage: OVER-THE-COUNTER; AS NEEDED

REACTIONS (5)
  - Fatigue [Unknown]
  - Injection site pain [Unknown]
  - Crohn^s disease [Unknown]
  - Pain [Unknown]
  - Diarrhoea [Unknown]
